FAERS Safety Report 9189859 (Version 2)
Quarter: 2013Q2

REPORT INFORMATION
  Report Type: Spontaneous
  Country: FI (occurrence: FI)
  Receive Date: 20130326
  Receipt Date: 20130419
  Transmission Date: 20140414
  Serious: Yes (Hospitalization)
  Sender: FDA-Public Use
  Company Number: FI-BAYER-2013-036478

PATIENT
  Age: 50 Year
  Sex: Male

DRUGS (9)
  1. NEXAVAR [Suspect]
     Indication: THYROID CANCER
     Dosage: DAILY DOSE 800 MG
     Route: 048
     Dates: start: 20111115, end: 20121119
  2. NEXAVAR [Suspect]
     Indication: THYROID CANCER
     Dosage: DAILY DOSE 800 MG
     Route: 048
     Dates: start: 20120621, end: 20120626
  3. NEXAVAR [Suspect]
     Indication: THYROID CANCER
     Dosage: UNK
     Route: 048
     Dates: start: 20120709, end: 20120718
  4. NEXAVAR [Suspect]
     Indication: THYROID CANCER
     Dosage: UNK
     Route: 048
     Dates: start: 201207
  5. THYROXIN [Concomitant]
     Dosage: DAILY DOSE .1 MG
  6. CALCI-CHEW [Concomitant]
  7. ORLOC [Concomitant]
     Indication: PALPITATIONS
     Dosage: 5 MG, QD
  8. XATRAL [Concomitant]
     Indication: PROSTATOMEGALY
     Dosage: 10 MG, QD
  9. FRAGMIN [Concomitant]
     Indication: VENOUS THROMBOSIS

REACTIONS (16)
  - Febrile infection [None]
  - Infection [None]
  - Pyrexia [None]
  - C-reactive protein increased [Not Recovered/Not Resolved]
  - Thyroid cancer metastatic [None]
  - Haemoptysis [Recovered/Resolved]
  - Chest pain [None]
  - Dyspnoea exertional [None]
  - Pyrexia [None]
  - Influenza like illness [None]
  - Rhinorrhoea [None]
  - Rhinorrhoea [None]
  - Dyspnoea [None]
  - Off label use [None]
  - Abdominal discomfort [None]
  - Body temperature increased [None]
